FAERS Safety Report 15023111 (Version 1)
Quarter: 2018Q2

REPORT INFORMATION
  Report Type: Spontaneous
  Country: US (occurrence: US)
  Receive Date: 20180524
  Receipt Date: 20180524
  Transmission Date: 20180711
  Serious: No
  Sender: FDA-Public Use
  Company Number: None

PATIENT
  Age: 66 Year
  Sex: Female

DRUGS (1)
  1. FORTEO [Suspect]
     Active Substance: TERIPARATIDE

REACTIONS (5)
  - White blood cell disorder [None]
  - Haemoglobin abnormal [None]
  - Platelet count abnormal [None]
  - Contusion [None]
  - Injection site bruising [None]

NARRATIVE: CASE EVENT DATE: 20180524
